FAERS Safety Report 24795304 (Version 1)
Quarter: 2024Q4

REPORT INFORMATION
  Report Type: Spontaneous
  Country: GB (occurrence: GB)
  Receive Date: 20241231
  Receipt Date: 20241231
  Transmission Date: 20250115
  Serious: Yes (Other)
  Sender: MYLAN
  Company Number: GB-MHRA-MED-202412270252537900-JHBCV

PATIENT
  Age: 49 Year
  Sex: Male
  Weight: 88 kg

DRUGS (1)
  1. ATORVASTATIN [Suspect]
     Active Substance: ATORVASTATIN
     Indication: Product used for unknown indication
     Dosage: UNK
     Route: 065

REACTIONS (3)
  - Muscle spasms [Not Recovered/Not Resolved]
  - Amnesia [Not Recovered/Not Resolved]
  - Cough [Not Recovered/Not Resolved]

NARRATIVE: CASE EVENT DATE: 20180505
